FAERS Safety Report 16921591 (Version 1)
Quarter: 2019Q4

REPORT INFORMATION
  Report Type: Spontaneous
  Country: CN (occurrence: CN)
  Receive Date: 20191015
  Receipt Date: 20191015
  Transmission Date: 20200122
  Serious: Yes (Death)
  Sender: FDA-Public Use
  Company Number: NVSC2019CN000719

PATIENT
  Age: 26 Year
  Sex: Male

DRUGS (7)
  1. METHOTREXATE. [Suspect]
     Active Substance: METHOTREXATE
     Indication: CHORIOCARCINOMA
     Route: 065
  2. VINCRISTINE [Suspect]
     Active Substance: VINCRISTINE
     Indication: CHORIOCARCINOMA
     Route: 065
  3. ACTINOMYCIN D [Suspect]
     Active Substance: DACTINOMYCIN
     Indication: CHORIOCARCINOMA
     Route: 065
  4. ETOPOSIDE. [Suspect]
     Active Substance: ETOPOSIDE
     Indication: CHORIOCARCINOMA
     Route: 065
  5. CYCLOPHOSPHAMIDE. [Suspect]
     Active Substance: CYCLOPHOSPHAMIDE
     Indication: CHORIOCARCINOMA
     Route: 065
  6. PACLITAXEL. [Suspect]
     Active Substance: PACLITAXEL
     Indication: CHORIOCARCINOMA
     Route: 065
  7. CISPLATIN. [Suspect]
     Active Substance: CISPLATIN
     Indication: CHORIOCARCINOMA
     Route: 065

REACTIONS (16)
  - Product use in unapproved indication [Unknown]
  - Hyperhidrosis [Unknown]
  - Headache [Fatal]
  - Fatigue [Unknown]
  - Cough [Unknown]
  - Metastases to central nervous system [Fatal]
  - Vomiting [Fatal]
  - Dizziness [Fatal]
  - Haemoptysis [Unknown]
  - Chest pain [Unknown]
  - General physical health deterioration [Unknown]
  - Drug resistance [Unknown]
  - Intracranial pressure increased [Fatal]
  - Haemorrhage intracranial [Fatal]
  - Extensor plantar response [Unknown]
  - Treatment failure [Unknown]
